FAERS Safety Report 14841626 (Version 2)
Quarter: 2018Q3

REPORT INFORMATION
  Report Type: Spontaneous
  Country: US (occurrence: US)
  Receive Date: 20180503
  Receipt Date: 20180820
  Transmission Date: 20181010
  Serious: Yes (Death)
  Sender: FDA-Public Use
  Company Number: US-ELI_LILLY_AND_COMPANY-US201804014869

PATIENT
  Sex: Male
  Weight: 145.13 kg

DRUGS (4)
  1. HUMULIN R U?500 [Suspect]
     Active Substance: INSULIN HUMAN
     Indication: TYPE 2 DIABETES MELLITUS
     Dosage: 120 U, EACH MORNING
     Route: 058
     Dates: start: 20160419
  2. NITROSTAT [Concomitant]
     Active Substance: NITROGLYCERIN
     Indication: PRODUCT USED FOR UNKNOWN INDICATION
     Dosage: UNK, PRN
  3. HUMULIN R U?500 [Suspect]
     Active Substance: INSULIN HUMAN
     Dosage: 115 U, EACH EVENING
     Route: 058
     Dates: start: 20160419
  4. HUMULIN R [Suspect]
     Active Substance: INSULIN HUMAN
     Indication: TYPE 2 DIABETES MELLITUS
     Dosage: UNK UNK, UNKNOWN
     Route: 058
     Dates: start: 20160303, end: 20160419

REACTIONS (2)
  - Myocardial infarction [Fatal]
  - Hypertensive heart disease [Fatal]
